FAERS Safety Report 8328125-9 (Version None)
Quarter: 2012Q2

REPORT INFORMATION
  Report Type: 
  Country: None (occurrence: None)
  Receive Date: 20120502
  Receipt Date: 20120424
  Transmission Date: 20120825
  Serious: Yes (Other)
  Sender: FDA-Public Use
  Company Number: US-AMGEN-USASP2012005217

PATIENT
  Age: 73 Year
  Sex: Male

DRUGS (1)
  1. ENBREL [Suspect]
     Indication: RHEUMATOID ARTHRITIS
     Dosage: 50 MG, QWK
     Dates: start: 20111001

REACTIONS (5)
  - OEDEMA PERIPHERAL [None]
  - HIP ARTHROPLASTY [None]
  - ARTHRALGIA [None]
  - BONE DEFORMITY [None]
  - PAIN IN EXTREMITY [None]
